FAERS Safety Report 25372229 (Version 1)
Quarter: 2025Q2

REPORT INFORMATION
  Report Type: Spontaneous
  Country: US (occurrence: US)
  Receive Date: 20250529
  Receipt Date: 20250529
  Transmission Date: 20250717
  Serious: Yes (Hospitalization)
  Sender: AUROBINDO
  Company Number: US-AUROBINDO-AUR-APL-2025-026469

PATIENT
  Age: 70 Year
  Sex: Female

DRUGS (3)
  1. DOXYCYCLINE [Suspect]
     Active Substance: DOXYCYCLINE
     Indication: Chylothorax
     Route: 065
  2. OCTREOTIDE [Suspect]
     Active Substance: OCTREOTIDE
     Indication: Chylothorax
     Dosage: 50 MILLIGRAM, 3 TIMES A DAY
     Route: 065
  3. TALC [Suspect]
     Active Substance: TALC
     Indication: Chylothorax
     Route: 065

REACTIONS (1)
  - Drug ineffective [Unknown]
